FAERS Safety Report 4828291-3 (Version None)
Quarter: 2005Q4

REPORT INFORMATION
  Report Type: 
  Country: None (occurrence: None)
  Receive Date: 20051114
  Receipt Date: 20051114
  Transmission Date: 20060501
  Serious: Yes (Life-Threatening)
  Sender: FDA-Public Use
  Company Number: None

PATIENT
  Age: 63 Year
  Sex: Male
  Weight: 105.2345 kg

DRUGS (5)
  1. TAXOTERE [Suspect]
     Indication: METASTATIC NEOPLASM
     Dosage: 171.75MG/Q 3 WEEKS/ IV
     Route: 042
     Dates: start: 20050411
  2. TAXOTERE [Suspect]
     Indication: TRANSITIONAL CELL CARCINOMA
     Dosage: 171.75MG/Q 3 WEEKS/ IV
     Route: 042
     Dates: start: 20050411
  3. GLEEVEC [Suspect]
     Indication: METASTATIC NEOPLASM
     Dosage: 400MG/QD FOR 6 DAYS/PO
     Route: 048
     Dates: start: 20050407, end: 20050412
  4. GLEEVEC [Suspect]
     Indication: TRANSITIONAL CELL CARCINOMA
     Dosage: 400MG/QD FOR 6 DAYS/PO
     Route: 048
     Dates: start: 20050407, end: 20050412
  5. TYLENOL (CAPLET) [Concomitant]

REACTIONS (2)
  - HAEMATOCRIT DECREASED [None]
  - HAEMOGLOBIN DECREASED [None]
